FAERS Safety Report 7177674-8 (Version None)
Quarter: 2010Q4

REPORT INFORMATION
  Report Type: 
  Country: None (occurrence: None)
  Receive Date: 20101220
  Receipt Date: 20101213
  Transmission Date: 20110411
  Serious: Yes (Hospitalization)
  Sender: FDA-Public Use
  Company Number: US-B.I. PHARMACEUTICALS,INC./RIDGEFIELD-2010-BP-12979BP

PATIENT
  Age: 81 Year
  Sex: Female
  Weight: 101.6 kg

DRUGS (6)
  1. PRADAXA [Suspect]
     Indication: ATRIAL FIBRILLATION
     Dosage: 300 MG
     Route: 048
     Dates: start: 20101106, end: 20101106
  2. CRESTOR [Concomitant]
  3. AMLODIPINE [Concomitant]
  4. COZAAR [Concomitant]
  5. SYNTHROID [Concomitant]
  6. NPH INSULIN [Concomitant]

REACTIONS (6)
  - BRONCHITIS [None]
  - COUGH [None]
  - DYSPNOEA [None]
  - HYPERSENSITIVITY [None]
  - UPPER RESPIRATORY TRACT INFECTION [None]
  - WHEEZING [None]
